FAERS Safety Report 9352723 (Version 1)
Quarter: 2013Q2

REPORT INFORMATION
  Report Type: Spontaneous
  Country: US (occurrence: None)
  Receive Date: 20130614
  Receipt Date: 20130614
  Transmission Date: 20140414
  Serious: Yes (Other)
  Sender: FDA-Public Use
  Company Number: None

PATIENT
  Age: 33 Year
  Sex: Female
  Weight: 145.61 kg

DRUGS (2)
  1. GAMUNEX [Suspect]
     Route: 042
     Dates: start: 20130611, end: 20130611
  2. GAMUNEX [Suspect]
     Route: 042

REACTIONS (4)
  - Nausea [None]
  - Headache [None]
  - Joint swelling [None]
  - Local swelling [None]
